FAERS Safety Report 13617179 (Version 1)
Quarter: 2017Q2

REPORT INFORMATION
  Report Type: Spontaneous
  Country: US (occurrence: US)
  Receive Date: 20170606
  Receipt Date: 20170606
  Transmission Date: 20170830
  Serious: No
  Sender: FDA-Public Use
  Company Number: US-SA-2017SA057418

PATIENT
  Age: 67 Year
  Sex: Female

DRUGS (2)
  1. SOLOSTAR [Concomitant]
     Active Substance: DEVICE
     Dates: start: 2013
  2. LANTUS SOLOSTAR [Suspect]
     Active Substance: INSULIN GLARGINE
     Indication: TYPE 2 DIABETES MELLITUS
     Dosage: DOSE:34 UNIT(S)
     Route: 058
     Dates: start: 2013

REACTIONS (7)
  - Increased appetite [Unknown]
  - Injection site reaction [Unknown]
  - Hyperhidrosis [Recovering/Resolving]
  - Blood glucose increased [Unknown]
  - Somnolence [Unknown]
  - Blood glucose decreased [Unknown]
  - Confusional state [Unknown]
